FAERS Safety Report 26027934 (Version 1)
Quarter: 2025Q4

REPORT INFORMATION
  Report Type: Report from Study
  Country: US (occurrence: US)
  Receive Date: 20251111
  Receipt Date: 20251111
  Transmission Date: 20260117
  Serious: No
  Sender: ACADIA PHARMACEUTICALS
  Company Number: US-ACADIA PHARMACEUTICALS INC.-ACA-2025-PIM-011934

PATIENT
  Age: 60 Year
  Sex: Male

DRUGS (13)
  1. NUPLAZID [Suspect]
     Active Substance: PIMAVANSERIN TARTRATE
     Indication: Parkinson^s disease
     Dosage: 34 MILLIGRAM, BID
     Route: 048
     Dates: start: 20240409, end: 20251029
  2. NUPLAZID [Suspect]
     Active Substance: PIMAVANSERIN TARTRATE
     Indication: Hallucination
  3. AMANTADINE [Concomitant]
     Active Substance: AMANTADINE
  4. CLONAZEPAM [Concomitant]
     Active Substance: CLONAZEPAM
  5. INGREZZA [Concomitant]
     Active Substance: VALBENAZINE DITOSYLATE
  6. OMEPRAZOLE [Concomitant]
     Active Substance: OMEPRAZOLE
  7. METHOCARBAMOL [Concomitant]
     Active Substance: METHOCARBAMOL
  8. CELEBREX [Concomitant]
     Active Substance: CELECOXIB
  9. CLOZAPINE [Concomitant]
     Active Substance: CLOZAPINE
  10. GARLIC (DEODORIZED) [Concomitant]
  11. CRESTOR [Concomitant]
     Active Substance: ROSUVASTATIN CALCIUM
  12. PROPRANOLOL [Concomitant]
     Active Substance: PROPRANOLOL HYDROCHLORIDE
  13. TIZANIDINE [Concomitant]
     Active Substance: TIZANIDINE

REACTIONS (3)
  - Dizziness [Unknown]
  - Fall [Unknown]
  - Inappropriate schedule of product administration [Unknown]

NARRATIVE: CASE EVENT DATE: 20251029
